FAERS Safety Report 9913384 (Version 1)
Quarter: 2014Q1

REPORT INFORMATION
  Report Type: Spontaneous
  Country: BR (occurrence: BR)
  Receive Date: 20140220
  Receipt Date: 20140220
  Transmission Date: 20141002
  Serious: Yes (Hospitalization)
  Sender: FDA-Public Use
  Company Number: BR-SA-2014SA017961

PATIENT
  Sex: Female

DRUGS (2)
  1. LANTUS [Suspect]
     Indication: DIABETES MELLITUS
     Dosage: 3 ML CARTRIDGE
     Route: 058
     Dates: start: 201311
  2. DEVICE NOS [Concomitant]
     Dates: start: 201311

REACTIONS (1)
  - Hospitalisation [Unknown]
